FAERS Safety Report 7250036-0 (Version None)
Quarter: 2011Q1

REPORT INFORMATION
  Report Type: 
  Country: None (occurrence: None)
  Receive Date: 20110118
  Receipt Date: 20110107
  Transmission Date: 20110831
  Serious: Yes (Hospitalization)
  Sender: FDA-Public Use
  Company Number: 2011SP001304

PATIENT
  Age: 60 Year
  Sex: Female

DRUGS (8)
  1. REMERON [Suspect]
     Indication: DEPRESSION
     Dosage: 30 MG;QD;PO
     Route: 048
     Dates: end: 20110101
  2. NORVASC [Suspect]
     Indication: PRODUCT USED FOR UNKNOWN INDICATION
  3. ALOSENN (SENNOSIDE A, B) (SENNOSIDE A. B) [Suspect]
  4. PLAVIX [Suspect]
     Indication: PRODUCT USED FOR UNKNOWN INDICATION
  5. TELMISARTAN AND HYDROCHLOROTHIAZIDE [Suspect]
     Indication: PRODUCT USED FOR UNKNOWN INDICATION
     Dosage: PO
     Route: 048
  6. TENORMIN [Suspect]
     Indication: PRODUCT USED FOR UNKNOWN INDICATION
  7. RPHYPNOL (FLUNITRAZEPAM) [Suspect]
     Indication: INSOMNIA
     Dosage: 1 MG; PO
     Route: 048
  8. RASILEZ (ALISKIREN FUMARATE) [Suspect]
     Indication: PRODUCT USED FOR UNKNOWN INDICATION

REACTIONS (2)
  - COMA [None]
  - SELF-MEDICATION [None]
